FAERS Safety Report 7261324-6 (Version None)
Quarter: 2011Q1

REPORT INFORMATION
  Report Type: 
  Country: None (occurrence: None)
  Receive Date: 20110130
  Receipt Date: 20101019
  Transmission Date: 20110831
  Serious: No
  Sender: FDA-Public Use
  Company Number: US-ABBOTT-10P-163-0680035-00

PATIENT
  Sex: Female
  Weight: 49.032 kg

DRUGS (5)
  1. MULTI-VITAMIN [Concomitant]
     Indication: VITAMIN SUPPLEMENTATION
  2. PENTASA [Concomitant]
     Indication: PRODUCT USED FOR UNKNOWN INDICATION
  3. HUMIRA [Suspect]
     Indication: CROHN'S DISEASE
     Dates: start: 20100301
  4. ALIGN [Concomitant]
     Indication: PRODUCT USED FOR UNKNOWN INDICATION
  5. LOESTRIN 1.5/30 [Concomitant]
     Indication: MENORRHAGIA

REACTIONS (5)
  - SINUSITIS [None]
  - DIARRHOEA HAEMORRHAGIC [None]
  - ABDOMINAL PAIN UPPER [None]
  - COUGH [None]
  - PYREXIA [None]
